FAERS Safety Report 7610292-3 (Version None)
Quarter: 2011Q3

REPORT INFORMATION
  Report Type: 
  Country: None (occurrence: None)
  Receive Date: 20110713
  Receipt Date: 20110713
  Transmission Date: 20111222
  Serious: Yes (Other)
  Sender: FDA-Public Use
  Company Number: None

PATIENT
  Age: 46 Year
  Sex: Male
  Weight: 102.0593 kg

DRUGS (1)
  1. CIALIS [Suspect]
     Indication: ERECTILE DYSFUNCTION
     Dosage: 20 MG PRN ORAL PERIODICALLY
     Route: 048
     Dates: start: 20091001

REACTIONS (3)
  - IRRITABILITY [None]
  - ANGER [None]
  - SLEEP DISORDER [None]
